FAERS Safety Report 5146500-0 (Version None)
Quarter: 2006Q4

REPORT INFORMATION
  Report Type: 
  Country: None (occurrence: None)
  Receive Date: 20061108
  Receipt Date: 20061101
  Transmission Date: 20070319
  Serious: Yes (Disabling)
  Sender: FDA-Public Use
  Company Number: US-MERCK-0611USA01023

PATIENT
  Age: 66 Year
  Sex: Female

DRUGS (2)
  1. ZOCOR [Suspect]
     Indication: HYPERLIPIDAEMIA
     Route: 048
     Dates: start: 20060928, end: 20061010
  2. ATENOLOL [Concomitant]
     Route: 065

REACTIONS (9)
  - ALOPECIA [None]
  - ANOREXIA [None]
  - ASTHENIA [None]
  - FATIGUE [None]
  - LOCAL SWELLING [None]
  - NECK PAIN [None]
  - PARAESTHESIA [None]
  - RASH [None]
  - SKIN EXFOLIATION [None]
